FAERS Safety Report 8824475 (Version 2)
Quarter: 2012Q4

REPORT INFORMATION
  Report Type: 
  Country: CO (occurrence: CO)
  Receive Date: 20121004
  Receipt Date: 20121015
  Transmission Date: 20130627
  Serious: Yes (Hospitalization)
  Sender: FDA-Public Use
  Company Number: CO-ELI_LILLY_AND_COMPANY-CO201209008396

PATIENT
  Age: 88 Year
  Sex: Female

DRUGS (4)
  1. FORTEO [Suspect]
     Indication: OSTEOPOROSIS
     Dosage: 20 ug, qd
     Route: 058
     Dates: start: 201204
  2. CALCIUM CITRATE [Concomitant]
  3. CHOLECALCIFEROL [Concomitant]
     Dosage: UNK
  4. ZOLEDRONATE [Concomitant]
     Dosage: UNK

REACTIONS (2)
  - Viral infection [Recovered/Resolved]
  - Blood parathyroid hormone decreased [Unknown]
